FAERS Safety Report 4579227-4 (Version None)
Quarter: 2005Q1

REPORT INFORMATION
  Report Type: 
  Country: None (occurrence: None)
  Receive Date: 20050209
  Receipt Date: 20050209
  Transmission Date: 20050727
  Serious: Yes (Life-Threatening, Hospitalization)
  Sender: FDA-Public Use
  Company Number: None

PATIENT
  Age: 83 Year
  Sex: Female

DRUGS (5)
  1. ZOCOR [Suspect]
     Indication: BLOOD CHOLESTEROL
     Dosage: 40 MG DAILY
     Dates: start: 20050131, end: 20050202
  2. LIPITOR [Concomitant]
  3. ASPIRIN [Concomitant]
  4. SYNTHROID [Concomitant]
  5. FOSAMAX [Concomitant]

REACTIONS (4)
  - ANAPHYLACTIC REACTION [None]
  - BLOOD PRESSURE DIASTOLIC DECREASED [None]
  - DYSPNOEA [None]
  - SWOLLEN TONGUE [None]
